FAERS Safety Report 10263509 (Version 1)
Quarter: 2014Q2

REPORT INFORMATION
  Report Type: Spontaneous
  Country: US (occurrence: US)
  Receive Date: 20140626
  Receipt Date: 20140626
  Transmission Date: 20141212
  Serious: No
  Sender: FDA-Public Use
  Company Number: US-009507513-1406USA012861

PATIENT
  Sex: 0

DRUGS (1)
  1. COPPERTONE WATER BABIES QUICK COVER LOTION SPRAY SPF-50 [Suspect]
     Indication: PROPHYLAXIS AGAINST SOLAR RADIATION
     Dosage: UNK, UNKNOWN
     Route: 061

REACTIONS (2)
  - Sunburn [Unknown]
  - Drug ineffective [Unknown]
